FAERS Safety Report 19065091 (Version 2)
Quarter: 2021Q2

REPORT INFORMATION
  Report Type: Report from Study
  Country: None (occurrence: CA)
  Receive Date: 20210326
  Receipt Date: 20210608
  Transmission Date: 20210717
  Serious: Yes (Death, Hospitalization, Other)
  Sender: FDA-Public Use
  Company Number: CA-ABBVIE-21K-028-3832170-00

PATIENT
  Age: 64 Year
  Sex: Male

DRUGS (1)
  1. LUPRON DEPOT [Suspect]
     Active Substance: LEUPROLIDE ACETATE
     Indication: PROSTATE CANCER
     Route: 030
     Dates: start: 20201228

REACTIONS (5)
  - Fall [Unknown]
  - Personality change [Unknown]
  - Brain operation [Fatal]
  - Post procedural complication [Fatal]
  - Fall [Recovered/Resolved]

NARRATIVE: CASE EVENT DATE: 2021
